FAERS Safety Report 21086300 (Version 2)
Quarter: 2022Q3

REPORT INFORMATION
  Report Type: Spontaneous
  Country: JP (occurrence: JP)
  Receive Date: 20220715
  Receipt Date: 20220725
  Transmission Date: 20221026
  Serious: Yes (Other)
  Sender: FDA-Public Use
  Company Number: JP-NOVOPROD-937618

PATIENT
  Age: 79 Year
  Sex: Male

DRUGS (1)
  1. OZEMPIC [Suspect]
     Active Substance: SEMAGLUTIDE
     Indication: Diabetes mellitus
     Dosage: 0.25 MG, QW
     Route: 058
     Dates: start: 202205

REACTIONS (1)
  - Gastrointestinal carcinoma [Unknown]
